FAERS Safety Report 4662104-8 (Version None)
Quarter: 2005Q2

REPORT INFORMATION
  Report Type: 
  Country: None (occurrence: None)
  Receive Date: 20050512
  Receipt Date: 20050426
  Transmission Date: 20051028
  Serious: Yes (Hospitalization)
  Sender: FDA-Public Use
  Company Number: US_0408105000

PATIENT
  Age: 49 Year
  Sex: Female
  Weight: 97 kg

DRUGS (20)
  1. FORTEO [Suspect]
     Indication: OSTEOPOROSIS
     Dosage: 20 UG/1 DAY
     Dates: start: 20040517
  2. CELLCEPT [Concomitant]
  3. PREDNISONE [Concomitant]
  4. FOLIC ACID [Concomitant]
  5. COUMADIN [Concomitant]
  6. VITAMIN D [Concomitant]
  7. PREVACID [Concomitant]
  8. ELAVIL [Concomitant]
  9. TOPAMAX [Concomitant]
  10. LIBRIUM [Concomitant]
  11. TENORMIN (ATENOLOL EG) [Concomitant]
  12. COPAXONE [Concomitant]
  13. KEPRA (LEVETIRACETAM) [Concomitant]
  14. ATROVENT [Concomitant]
  15. AMBIEN [Concomitant]
  16. SINGULAIR (MONTELUKAST) [Concomitant]
  17. AVINZA [Concomitant]
  18. NITRODUR II (GLYCERYL TRINITRATE) [Concomitant]
  19. COMPAZINE [Concomitant]
  20. BENTYL [Concomitant]

REACTIONS (18)
  - ARTERIOSPASM CORONARY [None]
  - BACK PAIN [None]
  - BLOOD ALKALINE PHOSPHATASE INCREASED [None]
  - CATHETER RELATED COMPLICATION [None]
  - CHILLS [None]
  - CONDITION AGGRAVATED [None]
  - DEVICE MALFUNCTION [None]
  - DIARRHOEA [None]
  - DYSPNOEA EXERTIONAL [None]
  - HAEMOGLOBIN DECREASED [None]
  - HEMIPARESIS [None]
  - INTERNATIONAL NORMALISED RATIO INCREASED [None]
  - LIGAMENT INJURY [None]
  - MULTIPLE SCLEROSIS [None]
  - MYOFASCIAL PAIN SYNDROME [None]
  - PANCREATITIS [None]
  - ROAD TRAFFIC ACCIDENT [None]
  - URINARY TRACT INFECTION [None]
